FAERS Safety Report 5441341-9 (Version None)
Quarter: 2007Q3

REPORT INFORMATION
  Report Type: 
  Country: None (occurrence: None)
  Receive Date: 20070903
  Receipt Date: 20070828
  Transmission Date: 20080115
  Serious: Yes (Other)
  Sender: FDA-Public Use
  Company Number: PHBS2007BR14267

PATIENT
  Age: 39 Year
  Sex: Female

DRUGS (3)
  1. TRILEPTAL [Suspect]
     Indication: CONVULSION
     Dosage: 600 MG, TID
     Route: 048
     Dates: start: 19960101
  2. FOLIC ACID [Concomitant]
     Indication: PREGNANCY
  3. PHENOBARBITAL TAB [Concomitant]
     Dosage: UNK, UNK
     Dates: start: 19910101, end: 20000101

REACTIONS (2)
  - ABORTION SPONTANEOUS [None]
  - DRUG EXPOSURE DURING PREGNANCY [None]
